FAERS Safety Report 6030150-8 (Version None)
Quarter: 2009Q1

REPORT INFORMATION
  Report Type: 
  Country: None (occurrence: None)
  Receive Date: 20090105
  Receipt Date: 20090105
  Transmission Date: 20090719
  Serious: Yes (Other)
  Sender: FDA-Public Use
  Company Number: None

PATIENT
  Age: 36 Year
  Sex: Male
  Weight: 122.4712 kg

DRUGS (2)
  1. FLUOXETINE [Suspect]
     Indication: DEPRESSION
     Dosage: 60MG 1X DAILY PO
     Route: 048
  2. PROZAC [Suspect]

REACTIONS (7)
  - APATHY [None]
  - DRUG EFFECT DECREASED [None]
  - DYSKINESIA [None]
  - LETHARGY [None]
  - LOSS OF LIBIDO [None]
  - MUSCLE TWITCHING [None]
  - WEIGHT INCREASED [None]
